FAERS Safety Report 23096915 (Version 1)
Quarter: 2023Q4

REPORT INFORMATION
  Report Type: Report from Study
  Country: CN (occurrence: CN)
  Receive Date: 20231023
  Receipt Date: 20231023
  Transmission Date: 20240109
  Serious: Yes (Hospitalization)
  Sender: FDA-Public Use
  Company Number: CN-PFIZER INC-PV202200082029

PATIENT
  Age: 70 Year
  Sex: Female

DRUGS (80)
  1. PACLITAXEL [Suspect]
     Active Substance: PACLITAXEL
     Indication: Triple negative breast cancer
     Dosage: 128.8 MG, WEEK
     Route: 042
     Dates: start: 20220808, end: 20220808
  2. PACLITAXEL [Suspect]
     Active Substance: PACLITAXEL
     Dosage: 128 MG, WEEK
     Route: 042
     Dates: start: 20220815, end: 20220815
  3. PACLITAXEL [Suspect]
     Active Substance: PACLITAXEL
     Dosage: 127.2 MG, WEEK
     Route: 042
     Dates: start: 20220824, end: 20220824
  4. PACLITAXEL [Suspect]
     Active Substance: PACLITAXEL
     Dosage: 128.8 MG, WEEK
     Route: 042
     Dates: start: 20220908, end: 20220908
  5. PACLITAXEL [Suspect]
     Active Substance: PACLITAXEL
     Dosage: 128.8 MG, WEEK
     Route: 042
     Dates: start: 20220915, end: 20220915
  6. PACLITAXEL [Suspect]
     Active Substance: PACLITAXEL
     Dosage: 128.8 MG, WEEK
     Route: 042
     Dates: start: 20220922, end: 20220922
  7. PACLITAXEL [Suspect]
     Active Substance: PACLITAXEL
     Dosage: 128.8 MG, WEEK
     Route: 042
     Dates: start: 20221006, end: 20221006
  8. PACLITAXEL [Suspect]
     Active Substance: PACLITAXEL
     Dosage: 128.8 MG, WEEK
     Route: 042
     Dates: start: 20221013, end: 20221013
  9. PACLITAXEL [Suspect]
     Active Substance: PACLITAXEL
     Dosage: 125.6 MG, WEEKLY
     Route: 042
     Dates: start: 20221020, end: 20221020
  10. PACLITAXEL [Suspect]
     Active Substance: PACLITAXEL
     Dosage: 129.6 MG, WEEKLY
     Route: 042
     Dates: start: 20221103, end: 20221103
  11. PACLITAXEL [Suspect]
     Active Substance: PACLITAXEL
     Dosage: 127.2 MG, WEEKLY
     Route: 042
     Dates: start: 20221110, end: 20221110
  12. PACLITAXEL [Suspect]
     Active Substance: PACLITAXEL
     Dosage: 128 MG, WEEKLY
     Route: 042
     Dates: start: 20221117, end: 20221117
  13. PACLITAXEL [Suspect]
     Active Substance: PACLITAXEL
     Dosage: 128.8 MG, WEEKLY
     Route: 042
     Dates: start: 20221201, end: 20221201
  14. PACLITAXEL [Suspect]
     Active Substance: PACLITAXEL
     Dosage: 128 MG, WEEKLY
     Route: 042
     Dates: start: 20221208, end: 20221208
  15. PACLITAXEL [Suspect]
     Active Substance: PACLITAXEL
     Dosage: 128.8 MG, WEEKLY
     Route: 042
     Dates: start: 20221215, end: 20221215
  16. PACLITAXEL [Suspect]
     Active Substance: PACLITAXEL
     Dosage: 127.2 MG, WEEKLY
     Route: 042
     Dates: start: 20230110, end: 20230110
  17. PACLITAXEL [Suspect]
     Active Substance: PACLITAXEL
     Dosage: 127.2 MG, WEEKLY
     Route: 042
     Dates: start: 20230117, end: 20230117
  18. PACLITAXEL [Suspect]
     Active Substance: PACLITAXEL
     Dosage: 122.4 MG, WEEKLY
     Route: 042
     Dates: start: 20230124, end: 20230124
  19. PACLITAXEL [Suspect]
     Active Substance: PACLITAXEL
     Dosage: 128 MG, WEEKLY
     Route: 042
     Dates: start: 20230208, end: 20230208
  20. PACLITAXEL [Suspect]
     Active Substance: PACLITAXEL
     Dosage: 126.4 MG, WEEKLY
     Route: 042
     Dates: start: 20230215, end: 20230215
  21. PACLITAXEL [Suspect]
     Active Substance: PACLITAXEL
     Dosage: 126.4 MG, WEEKLY
     Route: 042
     Dates: start: 20230222, end: 20230222
  22. PACLITAXEL [Suspect]
     Active Substance: PACLITAXEL
     Dosage: 128.8 MG, WEEKLY
     Route: 042
     Dates: start: 20230308, end: 20230308
  23. PACLITAXEL [Suspect]
     Active Substance: PACLITAXEL
     Dosage: 127.2 MG, WEEKLY
     Route: 042
     Dates: start: 20230315, end: 20230315
  24. PACLITAXEL [Suspect]
     Active Substance: PACLITAXEL
     Dosage: 128.8 MG, WEEKLY
     Route: 042
     Dates: start: 20230322, end: 20230322
  25. PACLITAXEL [Suspect]
     Active Substance: PACLITAXEL
     Dosage: 130.4 MG, WEEKLY
     Route: 042
     Dates: start: 20230405, end: 20230405
  26. PACLITAXEL [Suspect]
     Active Substance: PACLITAXEL
     Dosage: 128 MG, WEEKLY
     Route: 042
     Dates: start: 20230412, end: 20230412
  27. PACLITAXEL [Suspect]
     Active Substance: PACLITAXEL
     Dosage: 128 MG, WEEKLY
     Route: 042
     Dates: start: 20230419, end: 20230419
  28. INVESTIGATIONAL PRODUCT [Suspect]
     Active Substance: INVESTIGATIONAL PRODUCT
     Indication: Triple negative breast cancer
     Dosage: UNK, BID
     Route: 048
     Dates: start: 20220809, end: 20220812
  29. INVESTIGATIONAL PRODUCT [Suspect]
     Active Substance: INVESTIGATIONAL PRODUCT
     Dosage: UNK, BID
     Route: 048
     Dates: start: 20220816, end: 20220819
  30. INVESTIGATIONAL PRODUCT [Suspect]
     Active Substance: INVESTIGATIONAL PRODUCT
     Dosage: UNK, BID
     Route: 048
     Dates: start: 20220825, end: 20220828
  31. INVESTIGATIONAL PRODUCT [Suspect]
     Active Substance: INVESTIGATIONAL PRODUCT
     Dosage: UNK, BID
     Route: 048
     Dates: start: 20220909, end: 20220912
  32. INVESTIGATIONAL PRODUCT [Suspect]
     Active Substance: INVESTIGATIONAL PRODUCT
     Dosage: UNK, BID
     Route: 048
     Dates: start: 20220916, end: 20220916
  33. INVESTIGATIONAL PRODUCT [Suspect]
     Active Substance: INVESTIGATIONAL PRODUCT
     Dosage: UNK, BID
     Route: 048
     Dates: start: 20220917, end: 20220919
  34. INVESTIGATIONAL PRODUCT [Suspect]
     Active Substance: INVESTIGATIONAL PRODUCT
     Dosage: UNK, BID
     Route: 048
     Dates: start: 20220923, end: 20220926
  35. INVESTIGATIONAL PRODUCT [Suspect]
     Active Substance: INVESTIGATIONAL PRODUCT
     Dosage: UNK, BID
     Route: 048
     Dates: start: 20221007, end: 20221010
  36. INVESTIGATIONAL PRODUCT [Suspect]
     Active Substance: INVESTIGATIONAL PRODUCT
     Dosage: UNK, BID
     Route: 048
     Dates: start: 20221014, end: 20221017
  37. INVESTIGATIONAL PRODUCT [Suspect]
     Active Substance: INVESTIGATIONAL PRODUCT
     Dosage: UNK, BID
     Route: 048
     Dates: start: 20221021, end: 20221024
  38. INVESTIGATIONAL PRODUCT [Suspect]
     Active Substance: INVESTIGATIONAL PRODUCT
     Dosage: UNK, BID
     Route: 048
     Dates: start: 20221104, end: 20221107
  39. INVESTIGATIONAL PRODUCT [Suspect]
     Active Substance: INVESTIGATIONAL PRODUCT
     Dosage: UNK, BID
     Route: 048
     Dates: start: 20221111, end: 20221114
  40. INVESTIGATIONAL PRODUCT [Suspect]
     Active Substance: INVESTIGATIONAL PRODUCT
     Dosage: UNK, BID
     Route: 048
     Dates: start: 20221118, end: 20221121
  41. INVESTIGATIONAL PRODUCT [Suspect]
     Active Substance: INVESTIGATIONAL PRODUCT
     Dosage: UNK, BID
     Route: 048
     Dates: start: 20221202, end: 20221205
  42. INVESTIGATIONAL PRODUCT [Suspect]
     Active Substance: INVESTIGATIONAL PRODUCT
     Dosage: UNK, BID
     Route: 048
     Dates: start: 20221209, end: 20221212
  43. INVESTIGATIONAL PRODUCT [Suspect]
     Active Substance: INVESTIGATIONAL PRODUCT
     Dosage: UNK, BID
     Route: 048
     Dates: start: 20221216, end: 20221219
  44. INVESTIGATIONAL PRODUCT [Suspect]
     Active Substance: INVESTIGATIONAL PRODUCT
     Dosage: UNK, BID
     Route: 048
     Dates: start: 20230111, end: 20230114
  45. INVESTIGATIONAL PRODUCT [Suspect]
     Active Substance: INVESTIGATIONAL PRODUCT
     Dosage: UNK, BID
     Route: 048
     Dates: start: 20230118, end: 20230121
  46. INVESTIGATIONAL PRODUCT [Suspect]
     Active Substance: INVESTIGATIONAL PRODUCT
     Dosage: UNK, BID
     Route: 048
     Dates: start: 20230125, end: 20230128
  47. INVESTIGATIONAL PRODUCT [Suspect]
     Active Substance: INVESTIGATIONAL PRODUCT
     Dosage: UNK, BID
     Route: 048
     Dates: start: 20230209, end: 20230212
  48. INVESTIGATIONAL PRODUCT [Suspect]
     Active Substance: INVESTIGATIONAL PRODUCT
     Dosage: UNK, BID
     Route: 048
     Dates: start: 20230216, end: 20230219
  49. INVESTIGATIONAL PRODUCT [Suspect]
     Active Substance: INVESTIGATIONAL PRODUCT
     Dosage: UNK, BID
     Route: 048
     Dates: start: 20230223, end: 20230226
  50. INVESTIGATIONAL PRODUCT [Suspect]
     Active Substance: INVESTIGATIONAL PRODUCT
     Dosage: UNK, BID
     Route: 048
     Dates: start: 20230309, end: 20230312
  51. INVESTIGATIONAL PRODUCT [Suspect]
     Active Substance: INVESTIGATIONAL PRODUCT
     Dosage: UNK, BID
     Route: 048
     Dates: start: 20230316, end: 20230319
  52. INVESTIGATIONAL PRODUCT [Suspect]
     Active Substance: INVESTIGATIONAL PRODUCT
     Dosage: UNK, BID
     Route: 048
     Dates: start: 20230319, end: 20230322
  53. INVESTIGATIONAL PRODUCT [Suspect]
     Active Substance: INVESTIGATIONAL PRODUCT
     Dosage: UNK, BID
     Route: 048
     Dates: start: 20230323, end: 20230326
  54. INVESTIGATIONAL PRODUCT [Suspect]
     Active Substance: INVESTIGATIONAL PRODUCT
     Dosage: UNK, BID
     Route: 048
     Dates: start: 20230406, end: 20230409
  55. INVESTIGATIONAL PRODUCT [Suspect]
     Active Substance: INVESTIGATIONAL PRODUCT
     Dosage: UNK, BID
     Route: 048
     Dates: start: 20230413, end: 20230416
  56. ZOLPIDEM TARTRATE [Concomitant]
     Active Substance: ZOLPIDEM TARTRATE
     Indication: Insomnia
     Dosage: 10 MG, DAILY
     Route: 048
     Dates: start: 20220804
  57. ENOXAPARIN SODIUM [Concomitant]
     Active Substance: ENOXAPARIN SODIUM
     Indication: Subclavian vein thrombosis
     Dosage: 4 ML, DAILY
     Route: 058
     Dates: start: 20220804
  58. PALONOSETRON HYDROCHLORIDE [Concomitant]
     Active Substance: PALONOSETRON HYDROCHLORIDE
     Indication: Prophylaxis of nausea and vomiting
     Dosage: 0.25 MG, ONCE
     Route: 042
     Dates: start: 20220808, end: 20220808
  59. PALONOSETRON HYDROCHLORIDE [Concomitant]
     Active Substance: PALONOSETRON HYDROCHLORIDE
     Dosage: 0.25 MG, DAILY
     Route: 042
     Dates: start: 20220815, end: 20220815
  60. PALONOSETRON HYDROCHLORIDE [Concomitant]
     Active Substance: PALONOSETRON HYDROCHLORIDE
     Dosage: 0.25 MG, DAILY
     Route: 042
     Dates: start: 20220824, end: 20220824
  61. SITAGLIPTIN [Concomitant]
     Active Substance: SITAGLIPTIN
     Indication: Diabetes mellitus
     Dosage: 100 MG, DAILY, INTRO SITAGLIPTIN
     Route: 048
     Dates: start: 20220809
  62. POTASSIUM CHLORIDE [Concomitant]
     Active Substance: POTASSIUM CHLORIDE
     Indication: Hypokalaemia
     Dosage: 30 ML, ONCE
     Route: 048
     Dates: start: 20220824, end: 20220824
  63. POTASSIUM CHLORIDE [Concomitant]
     Active Substance: POTASSIUM CHLORIDE
     Dosage: 10 ML, ONCE
     Route: 048
     Dates: start: 20220824, end: 20220824
  64. POTASSIUM CHLORIDE [Concomitant]
     Active Substance: POTASSIUM CHLORIDE
     Dosage: 1 G, 3X/DAY
     Route: 048
     Dates: start: 20220824, end: 20220904
  65. GRANULOCYTE COLONY-STIMULATING FACTOR NOS [Concomitant]
     Active Substance: GRANULOCYTE COLONY-STIMULATING FACTOR NOS
     Indication: Leukopenia
     Dosage: 8 ML, ONCE
     Route: 058
     Dates: start: 20220817, end: 20220817
  66. GRANULOCYTE COLONY-STIMULATING FACTOR NOS [Concomitant]
     Active Substance: GRANULOCYTE COLONY-STIMULATING FACTOR NOS
     Indication: Neutrophil count decreased
  67. REPAGLINIDE [Concomitant]
     Active Substance: REPAGLINIDE
     Indication: Hyperglycaemia
     Dosage: AS REQUIRED
     Route: 048
     Dates: start: 20220815
  68. LEUCOGEN [Concomitant]
     Active Substance: LEUCOGEN
     Indication: White blood cell count decreased
     Dosage: 20 MG, 3X/DAY
     Route: 048
     Dates: start: 20220809, end: 20220813
  69. LEUCOGEN [Concomitant]
     Active Substance: LEUCOGEN
     Indication: Neutrophil count decreased
     Dosage: 20 MG, 3X/DAY
     Route: 048
     Dates: start: 20220814, end: 20220823
  70. LEUCOGEN [Concomitant]
     Active Substance: LEUCOGEN
     Dosage: 20 MG, 3X/DAY
     Route: 048
     Dates: start: 20220824
  71. MONTMORILLONITE [Concomitant]
     Active Substance: MONTMORILLONITE
     Indication: Diarrhoea
     Dosage: 3 G, 3X/DAY
     Route: 048
     Dates: start: 20220821, end: 20220825
  72. IODINE [Concomitant]
     Active Substance: IODINE
     Indication: Cough
     Dosage: 1 DF, 4X/DAY
     Route: 048
     Dates: start: 20220824, end: 20220830
  73. PIAN JIANG HUANG [Concomitant]
     Indication: Skin laceration
     Dosage: 1 DF, 2X/DAY
     Route: 048
     Dates: end: 20220818
  74. DIOSMIN [Concomitant]
     Active Substance: DIOSMIN
     Indication: Subclavian vein thrombosis
     Dosage: 9 G, 2X/DAY
     Route: 048
     Dates: start: 20220804
  75. QI JIAO SHENG BAI [Concomitant]
     Indication: White blood cell count decreased
     Dosage: 4 DF, 3X/DAY
     Route: 048
     Dates: start: 20220809, end: 20220813
  76. QI JIAO SHENG BAI [Concomitant]
     Indication: Neutrophil count decreased
     Dosage: 4 DF, 3X/DAY
     Route: 048
     Dates: start: 20220814, end: 20220823
  77. QI JIAO SHENG BAI [Concomitant]
     Dosage: 4 DF, 3X/DAY
     Route: 048
     Dates: start: 20220824, end: 20220825
  78. DEXAMETHASONE SODIUM PHOSPHATE [Concomitant]
     Active Substance: DEXAMETHASONE SODIUM PHOSPHATE
     Indication: Hypersensitivity
     Dosage: 200 MG, DAILY
     Route: 042
     Dates: start: 20220815, end: 20220815
  79. DEXAMETHASONE SODIUM PHOSPHATE [Concomitant]
     Active Substance: DEXAMETHASONE SODIUM PHOSPHATE
     Dosage: 20 MG, DAILY
     Route: 042
     Dates: start: 20220824, end: 20220824
  80. HYDROTALCITE [Concomitant]
     Active Substance: HYDROTALCITE
     Indication: Abdominal discomfort
     Dosage: 2 DF, 3X/DAY
     Route: 048
     Dates: start: 20220815

REACTIONS (1)
  - Rash erythematous [Recovered/Resolved]

NARRATIVE: CASE EVENT DATE: 20220824
